FAERS Safety Report 9007481 (Version 1)
Quarter: 2013Q1

REPORT INFORMATION
  Report Type: Spontaneous
  Country: US (occurrence: US)
  Receive Date: 20130111
  Receipt Date: 20130111
  Transmission Date: 20140127
  Serious: Yes (Other)
  Sender: FDA-Public Use
  Company Number: US-009507513-0907USA03681

PATIENT
  Age: 73 Year
  Sex: Male
  Weight: 88.45 kg

DRUGS (2)
  1. SINGULAIR [Suspect]
     Indication: BRONCHITIS
     Dosage: 10 MG, QD
     Route: 048
     Dates: start: 20081010, end: 20081010
  2. LEVAQUIN [Suspect]
     Indication: BRONCHITIS
     Dosage: 750 MG, QD
     Route: 048
     Dates: start: 20081010, end: 20081010

REACTIONS (6)
  - Confusional state [Recovering/Resolving]
  - Abnormal dreams [Recovering/Resolving]
  - Anger [Recovering/Resolving]
  - Hallucination, visual [Recovering/Resolving]
  - Suicidal ideation [Recovering/Resolving]
  - Initial insomnia [Recovering/Resolving]
